FAERS Safety Report 4772152-5 (Version None)
Quarter: 2005Q3

REPORT INFORMATION
  Report Type: 
  Country: None (occurrence: None)
  Receive Date: 20050919
  Receipt Date: 20040812
  Transmission Date: 20060218
  Serious: No
  Sender: FDA-Public Use
  Company Number: US-BRISTOL-MYERS SQUIBB COMPANY-12672564

PATIENT
  Age: 51 Year
  Sex: Male

DRUGS (1)
  1. DEFINITY [Suspect]
     Dosage: DILUTED BOLUS
     Route: 040
     Dates: start: 20040810, end: 20040810

REACTIONS (2)
  - BACK PAIN [None]
  - PAIN IN EXTREMITY [None]
